FAERS Safety Report 8085922-5 (Version None)
Quarter: 2012Q1

REPORT INFORMATION
  Report Type: 
  Country: None (occurrence: None)
  Receive Date: 20120128
  Receipt Date: 20110429
  Transmission Date: 20120608
  Serious: Yes (Other)
  Sender: FDA-Public Use
  Company Number: US-ABBOTT-11P-163-0722879-00

PATIENT
  Sex: Female

DRUGS (4)
  1. OXYCONTIN [Concomitant]
     Indication: ARTHRALGIA
  2. OXYCONTIN [Concomitant]
     Indication: PROCEDURAL PAIN
     Dates: start: 20110110
  3. HUMIRA [Suspect]
     Indication: OSTEOARTHRITIS
     Dosage: ONCE, FIRST INJECTION
     Route: 058
     Dates: start: 20110101, end: 20110101
  4. HUMIRA [Suspect]
     Route: 058
     Dates: start: 20110411

REACTIONS (3)
  - ARTHRALGIA [None]
  - INSOMNIA [None]
  - PAIN [None]
